FAERS Safety Report 11827819 (Version 1)
Quarter: 2015Q4

REPORT INFORMATION
  Report Type: Spontaneous
  Country: US (occurrence: US)
  Receive Date: 20151211
  Receipt Date: 20151211
  Transmission Date: 20160305
  Serious: Yes (Other)
  Sender: FDA-Public Use
  Company Number: US-SHIRE-US201515888

PATIENT
  Sex: Female
  Weight: 54.42 kg

DRUGS (6)
  1. VYVANSE [Suspect]
     Active Substance: LISDEXAMFETAMINE DIMESYLATE
     Dosage: 40 MG, 1X/DAY:QD
     Route: 048
     Dates: start: 2015
  2. ORAL CONTRACEPTIVE NOS [Concomitant]
     Active Substance: UNSPECIFIED INGREDIENT
     Indication: CONTRACEPTION
     Dosage: UNK, 1X/DAY:QD
     Route: 048
  3. VYVANSE [Suspect]
     Active Substance: LISDEXAMFETAMINE DIMESYLATE
     Dosage: 30 MG, 1X/DAY:QD (MID-DAY)
     Route: 048
     Dates: start: 2008, end: 2010
  4. XYREM [Concomitant]
     Active Substance: SODIUM OXYBATE
     Indication: INITIAL INSOMNIA
     Dosage: UNK, 1X/DAY:QD
     Route: 048
     Dates: start: 2013
  5. VYVANSE [Suspect]
     Active Substance: LISDEXAMFETAMINE DIMESYLATE
     Dosage: 20 MG, AS REQ^D
     Route: 048
     Dates: start: 2009, end: 2015
  6. VYVANSE [Suspect]
     Active Substance: LISDEXAMFETAMINE DIMESYLATE
     Indication: NARCOLEPSY
     Dosage: 40 MG, 1X/DAY:QD
     Route: 048
     Dates: start: 2008, end: 2015

REACTIONS (8)
  - Inappropriate schedule of drug administration [Recovered/Resolved]
  - Drug dose omission [Recovered/Resolved]
  - Drug ineffective [Recovered/Resolved]
  - Cytogenetic abnormality [Not Recovered/Not Resolved]
  - Fatigue [Recovered/Resolved]
  - Prescribed overdose [Recovered/Resolved]
  - Product use issue [Not Recovered/Not Resolved]
  - Drug tolerance [Recovered/Resolved]

NARRATIVE: CASE EVENT DATE: 2008
